FAERS Safety Report 25386658 (Version 1)
Quarter: 2025Q2

REPORT INFORMATION
  Report Type: Spontaneous
  Country: US (occurrence: US)
  Receive Date: 20250602
  Receipt Date: 20250602
  Transmission Date: 20250717
  Serious: Yes (Other)
  Sender: SANDOZ
  Company Number: US-SANDOZ-SDZ2025US037840

PATIENT
  Sex: Female

DRUGS (11)
  1. AZITHROMYCIN [Suspect]
     Active Substance: AZITHROMYCIN
     Indication: Atypical mycobacterial infection
     Route: 065
     Dates: start: 2018, end: 2019
  2. AZITHROMYCIN [Suspect]
     Active Substance: AZITHROMYCIN
     Route: 065
     Dates: start: 2020
  3. AZITHROMYCIN [Suspect]
     Active Substance: AZITHROMYCIN
     Route: 065
     Dates: start: 202203
  4. ARIKAYCE [Suspect]
     Active Substance: AMIKACIN
     Indication: Atypical mycobacterial infection
     Route: 055
     Dates: start: 2018, end: 2019
  5. BEDAQUILINE [Suspect]
     Active Substance: BEDAQUILINE
     Indication: Atypical mycobacterial infection
     Route: 065
     Dates: start: 2018, end: 2019
  6. BEDAQUILINE [Suspect]
     Active Substance: BEDAQUILINE
     Route: 065
     Dates: start: 2020
  7. BEDAQUILINE [Suspect]
     Active Substance: BEDAQUILINE
     Route: 065
     Dates: start: 202203
  8. CLOFAZIMINE [Suspect]
     Active Substance: CLOFAZIMINE
     Indication: Atypical mycobacterial infection
     Route: 065
     Dates: start: 2020
  9. CLOFAZIMINE [Suspect]
     Active Substance: CLOFAZIMINE
     Route: 065
     Dates: start: 202203
  10. IMIPENEM [Suspect]
     Active Substance: IMIPENEM
     Indication: Atypical mycobacterial infection
     Route: 065
     Dates: start: 202203
  11. RIFABUTIN [Suspect]
     Active Substance: RIFABUTIN
     Indication: Atypical mycobacterial infection
     Route: 065
     Dates: start: 2018, end: 2019

REACTIONS (3)
  - Mycobacterium avium complex infection [Unknown]
  - Mycobacterium avium complex infection [Unknown]
  - Thoracic operation [Unknown]

NARRATIVE: CASE EVENT DATE: 20200101
